FAERS Safety Report 5346998-9 (Version None)
Quarter: 2007Q2

REPORT INFORMATION
  Report Type: 
  Country: None (occurrence: None)
  Receive Date: 20070604
  Receipt Date: 20070521
  Transmission Date: 20071010
  Serious: Yes (Death, Other)
  Sender: FDA-Public Use
  Company Number: 100#08#2007-01780

PATIENT
  Age: 51 Year
  Sex: Female

DRUGS (3)
  1. TAMOXIFEN CITRATE [Suspect]
     Indication: ANGIOSCLEROSIS
     Dosage: 20 MG
     Dates: start: 20050501
  2. PREDNISONE (PREDNISONE) (PREDNISONE) [Concomitant]
  3. VITAMIN D (ERGOCALCIFEROL) (VITAMIN D) [Concomitant]

REACTIONS (9)
  - ANAEMIA [None]
  - BACTERIAL SEPSIS [None]
  - CALCIPHYLAXIS [None]
  - DRUG RESISTANCE [None]
  - HYPOALBUMINAEMIA [None]
  - HYPOTENSION [None]
  - NO THERAPEUTIC RESPONSE [None]
  - PAIN IN EXTREMITY [None]
  - SKIN ULCER [None]
